FAERS Safety Report 5008580-2 (Version None)
Quarter: 2006Q2

REPORT INFORMATION
  Report Type: 
  Country: None (occurrence: None)
  Receive Date: 20060523
  Receipt Date: 19980727
  Transmission Date: 20061013
  Serious: Yes (Hospitalization)
  Sender: FDA-Public Use
  Company Number: FR-ROCHE-103701

PATIENT
  Age: 56 Year
  Sex: Male
  Weight: 83 kg

DRUGS (5)
  1. ROFERON-A [Suspect]
     Route: 058
     Dates: start: 19971015, end: 19980329
  2. PLACEBO [Suspect]
     Indication: HEPATITIS C
     Route: 048
     Dates: start: 19971015, end: 19980325
  3. PARACETAMOL [Concomitant]
     Route: 048
     Dates: start: 19971015
  4. VITAMIN B1 B6 [Concomitant]
     Route: 048
     Dates: start: 19970107
  5. MACROGOL 4000 [Concomitant]
     Route: 048
     Dates: start: 19970425, end: 19980602

REACTIONS (13)
  - ARTERIOVENOUS FISTULA OCCLUSION [None]
  - CONSTIPATION [None]
  - DIFFICULTY IN WALKING [None]
  - DRUG INEFFECTIVE [None]
  - DYSURIA [None]
  - ERECTILE DYSFUNCTION [None]
  - FATIGUE [None]
  - HYPOAESTHESIA [None]
  - HYPOREFLEXIA [None]
  - INTERMITTENT CLAUDICATION [None]
  - MUSCULOSKELETAL STIFFNESS [None]
  - NEUROPATHY [None]
  - THROMBOCYTOPENIA [None]
